FAERS Safety Report 22147061 (Version 1)
Quarter: 2023Q1

REPORT INFORMATION
  Report Type: Spontaneous
  Country: US (occurrence: US)
  Receive Date: 20230328
  Receipt Date: 20230328
  Transmission Date: 20230418
  Serious: No
  Sender: FDA-Public Use
  Company Number: US-drreddys-SPO/USA/23/0160891

PATIENT
  Age: 22 Year

DRUGS (1)
  1. ACCUTANE [Suspect]
     Active Substance: ISOTRETINOIN
     Indication: Product used for unknown indication
     Dosage: RMA ISSUE DATE:08/AUGUST/2022 04:03:35 PM, 14/SEPTEMBER/2022 02:27:51 PM, 28/OCTOBER/2022 01:43:25 P

REACTIONS (1)
  - Abdominal discomfort [Unknown]
